FAERS Safety Report 8359152-3 (Version None)
Quarter: 2012Q2

REPORT INFORMATION
  Report Type: 
  Country: None (occurrence: None)
  Receive Date: 20120515
  Receipt Date: 20120504
  Transmission Date: 20120825
  Serious: Yes (Hospitalization)
  Sender: FDA-Public Use
  Company Number: US-BRISTOL-MYERS SQUIBB COMPANY-16572588

PATIENT
  Age: 53 Year
  Sex: Male
  Weight: 42 kg

DRUGS (5)
  1. CETUXIMAB [Suspect]
     Indication: HEAD AND NECK CANCER
     Route: 042
     Dates: start: 20120307, end: 20120307
  2. CARBOPLATIN [Suspect]
     Indication: HEAD AND NECK CANCER
     Dosage: 1DF= 5AUC LAST DOSE: 16APR12
     Route: 042
     Dates: start: 20120319
  3. OXYCODONE HCL [Concomitant]
     Indication: TUMOUR PAIN
     Dates: start: 20120201
  4. FLUOROURACIL [Suspect]
     Indication: HEAD AND NECK CANCER
     Dosage: LAST DOSE: 20APR12
     Route: 042
     Dates: start: 20120319
  5. OXYCONTIN [Concomitant]
     Indication: TUMOUR PAIN
     Dates: start: 20120201

REACTIONS (7)
  - HYPOALBUMINAEMIA [None]
  - NEUTROPHIL COUNT DECREASED [None]
  - FALL [None]
  - HYPOKALAEMIA [None]
  - BLOOD CREATININE INCREASED [None]
  - WHITE BLOOD CELL COUNT DECREASED [None]
  - PLATELET COUNT DECREASED [None]
